FAERS Safety Report 11018727 (Version 2)
Quarter: 2015Q2

REPORT INFORMATION
  Report Type: Spontaneous
  Country: US (occurrence: US)
  Receive Date: 20150412
  Receipt Date: 20150524
  Transmission Date: 20150821
  Serious: Yes (Other)
  Sender: FDA-Public Use
  Company Number: US-JNJFOC-20130202794

PATIENT
  Age: 40 Year
  Sex: Female

DRUGS (3)
  1. IFOSFAMIDE. [Suspect]
     Active Substance: IFOSFAMIDE
     Indication: ANGIOSARCOMA
     Dosage: 2.5 G/ M2 ADMINISTERED ON DAYS 1-3 OF A THREE WEEK TREATMENT CYCLE
     Route: 065
  2. PEGFILGRASTIM [Suspect]
     Active Substance: PEGFILGRASTIM
     Indication: ANGIOSARCOMA
     Dosage: ROUTINELY GIVEN ON DAY 4
     Route: 065
  3. DOXORUBICIN HYDROCHLORIDE. [Suspect]
     Active Substance: DOXORUBICIN HYDROCHLORIDE
     Indication: ANGIOSARCOMA
     Route: 042

REACTIONS (2)
  - Febrile neutropenia [Unknown]
  - Angiosarcoma [Not Recovered/Not Resolved]
